FAERS Safety Report 7110197-0 (Version None)
Quarter: 2010Q4

REPORT INFORMATION
  Report Type: 
  Country: None (occurrence: None)
  Receive Date: 20101116
  Receipt Date: 20101116
  Transmission Date: 20110411
  Serious: No
  Sender: FDA-Public Use
  Company Number: None

PATIENT
  Age: 15 Year
  Sex: Male
  Weight: 69 kg

DRUGS (1)
  1. OMNIPAQUE 300 [Suspect]
     Dosage: ONE TIME ONLY
     Dates: start: 20100831, end: 20100831

REACTIONS (1)
  - URTICARIA [None]
